FAERS Safety Report 26190683 (Version 1)
Quarter: 2025Q4

REPORT INFORMATION
  Report Type: Spontaneous
  Country: AM (occurrence: AM)
  Receive Date: 20251223
  Receipt Date: 20251223
  Transmission Date: 20260118
  Serious: Yes (Other)
  Sender: RANBAXY
  Company Number: AM-SUN PHARMACEUTICAL INDUSTRIES LTD-2025RR-541877

PATIENT
  Age: 13 Year
  Sex: Female

DRUGS (7)
  1. MIDAZOLAM [Suspect]
     Active Substance: MIDAZOLAM
     Indication: Apathy
     Dosage: UNK
     Route: 065
  2. MIDAZOLAM [Suspect]
     Active Substance: MIDAZOLAM
     Indication: Anxiety
  3. MIDAZOLAM [Suspect]
     Active Substance: MIDAZOLAM
     Indication: Suspiciousness
  4. DIPHENHYDRAMINE [Suspect]
     Active Substance: DIPHENHYDRAMINE
     Indication: Rhabdomyolysis
     Dosage: UNK
     Route: 065
  5. RISPERIDONE [Suspect]
     Active Substance: RISPERIDONE
     Indication: Apathy
     Dosage: UNK
     Route: 048
  6. RISPERIDONE [Suspect]
     Active Substance: RISPERIDONE
     Indication: Anxiety
  7. RISPERIDONE [Suspect]
     Active Substance: RISPERIDONE
     Indication: Suspiciousness

REACTIONS (3)
  - Hallucination, visual [Unknown]
  - Rhabdomyolysis [Recovering/Resolving]
  - Therapeutic product effect incomplete [Unknown]
